FAERS Safety Report 5753573-0 (Version None)
Quarter: 2008Q2

REPORT INFORMATION
  Report Type: 
  Country: None (occurrence: None)
  Receive Date: 20080530
  Receipt Date: 20080423
  Transmission Date: 20081010
  Serious: No
  Sender: FDA-Public Use
  Company Number: BE-AVENTIS-200814782GDDC

PATIENT
  Age: 20 Year
  Sex: Female

DRUGS (2)
  1. ARAVA [Suspect]
     Indication: POLYARTHRITIS
     Route: 048
  2. ENBREL [Concomitant]
     Indication: POLYARTHRITIS
     Route: 058

REACTIONS (1)
  - DRUG EXPOSURE DURING PREGNANCY [None]
